FAERS Safety Report 10103587 (Version 1)
Quarter: 2014Q2

REPORT INFORMATION
  Report Type: Report from Study
  Country: US (occurrence: US)
  Receive Date: 20140424
  Receipt Date: 20140424
  Transmission Date: 20141212
  Serious: Yes (Other)
  Sender: FDA-Public Use
  Company Number: CHPA2014US005499

PATIENT
  Age: 40 Year
  Sex: Female

DRUGS (5)
  1. EXCEDRIN UNKNOWN [Suspect]
     Indication: HEADACHE
     Dosage: UNK
     Route: 048
     Dates: start: 2013
  2. HUMIRA [Suspect]
     Indication: COLITIS ULCERATIVE
     Dosage: 40 MG, UNK
     Dates: start: 201303, end: 201303
  3. HUMIRA [Suspect]
     Dosage: 80 MG, UNK
     Dates: start: 2013, end: 2013
  4. HUMIRA [Suspect]
     Dosage: 40 MG, QW2
     Dates: start: 201303
  5. TYLENOL [Suspect]
     Indication: HEADACHE
     Dosage: 2 DF, PRN
     Route: 048
     Dates: start: 2013

REACTIONS (4)
  - Anaemia [Unknown]
  - Alopecia [Unknown]
  - Headache [Unknown]
  - Drug ineffective [Unknown]
